FAERS Safety Report 18716100 (Version 1)
Quarter: 2021Q1

REPORT INFORMATION
  Report Type: Spontaneous
  Country: US (occurrence: US)
  Receive Date: 20210108
  Receipt Date: 20210108
  Transmission Date: 20210419
  Serious: Yes (Hospitalization, Other)
  Sender: FDA-Public Use
  Company Number: US-009507513-2101USA001239

PATIENT
  Sex: Male

DRUGS (7)
  1. CHOLECALCIFEROL [Concomitant]
     Active Substance: CHOLECALCIFEROL
     Dosage: UNK
  2. VITAMIN D (UNSPECIFIED) [Concomitant]
     Active Substance: VITAMIN D NOS
     Dosage: 2 DF, UNKNOWN
     Route: 065
  3. CALCIUM (UNSPECIFIED) [Suspect]
     Active Substance: CALCIUM
     Indication: PRODUCT USED FOR UNKNOWN INDICATION
     Dosage: UNK, UNKNOWN
     Route: 065
  4. FORTEO [Suspect]
     Active Substance: TERIPARATIDE
     Indication: OSTEOPOROSIS
     Dosage: 20 MICROGRAM, QD
     Route: 065
     Dates: start: 2010, end: 2012
  5. FOSAMAX [Suspect]
     Active Substance: ALENDRONATE SODIUM
     Indication: PRODUCT USED FOR UNKNOWN INDICATION
     Dosage: UNK
     Route: 065
  6. VITAMINS (UNSPECIFIED) [Concomitant]
     Active Substance: VITAMINS
     Dosage: UNK
  7. FORTEO [Suspect]
     Active Substance: TERIPARATIDE
     Dosage: 20 MICROGRAM, QD
     Route: 065
     Dates: start: 20160401

REACTIONS (16)
  - Limb discomfort [Unknown]
  - Cholecystitis [Recovered/Resolved]
  - Protein total decreased [Unknown]
  - Nephrolithiasis [Unknown]
  - Blood calcium decreased [Unknown]
  - Pleural effusion [Unknown]
  - Tibia fracture [Unknown]
  - Incorrect product administration duration [Unknown]
  - Fibula fracture [Unknown]
  - Abscess [Unknown]
  - Skin ulcer [Recovered/Resolved]
  - Ankle fracture [Unknown]
  - Radius fracture [Unknown]
  - Pain [Unknown]
  - Autonomic dysreflexia [Not Recovered/Not Resolved]
  - Spinal compression fracture [Unknown]

NARRATIVE: CASE EVENT DATE: 2010
